FAERS Safety Report 6423761-9 (Version None)
Quarter: 2009Q4

REPORT INFORMATION
  Report Type: 
  Country: None (occurrence: None)
  Receive Date: 20091028
  Receipt Date: 20091014
  Transmission Date: 20100525
  Serious: Yes (Other)
  Sender: FDA-Public Use
  Company Number: 2009AL006676

PATIENT
  Age: 81 Year
  Sex: Female

DRUGS (9)
  1. OXAZEPAM [Suspect]
  2. PAROXETINE HCL [Concomitant]
  3. ATORVASTATIN [Concomitant]
  4. GLICLAZIDE [Concomitant]
  5. CARBASALATE [Concomitant]
  6. CALCIUM [Concomitant]
  7. RISPERIDONE [Concomitant]
  8. LEVETIRACETAM [Concomitant]
  9. INSULINE [Concomitant]

REACTIONS (4)
  - AGGRESSION [None]
  - HALLUCINATION [None]
  - PARANOIA [None]
  - SUICIDE ATTEMPT [None]
